FAERS Safety Report 11812681 (Version 1)
Quarter: 2015Q4

REPORT INFORMATION
  Report Type: Spontaneous
  Country: US (occurrence: US)
  Receive Date: 20151208
  Receipt Date: 20151208
  Transmission Date: 20160305
  Serious: No
  Sender: FDA-Public Use
  Company Number: US-ASTRAZENECA-2015SF17876

PATIENT
  Sex: Female

DRUGS (4)
  1. PRILOSEC [Suspect]
     Active Substance: OMEPRAZOLE MAGNESIUM
     Indication: GASTROOESOPHAGEAL REFLUX DISEASE
     Route: 048
  2. IRON [Concomitant]
     Active Substance: IRON
     Indication: ANAEMIA
  3. EMERGEN-C [Suspect]
     Active Substance: VITAMINS
     Route: 065
  4. NEXIUM [Suspect]
     Active Substance: ESOMEPRAZOLE MAGNESIUM
     Route: 048

REACTIONS (6)
  - Electrolyte imbalance [Unknown]
  - Malabsorption [Unknown]
  - Muscle spasms [Not Recovered/Not Resolved]
  - Sleep disorder [Unknown]
  - Anaemia [Unknown]
  - Drug ineffective [Unknown]
